FAERS Safety Report 6997714-6 (Version None)
Quarter: 2010Q3

REPORT INFORMATION
  Report Type: 
  Country: None (occurrence: None)
  Receive Date: 20100918
  Receipt Date: 20091123
  Transmission Date: 20110219
  Serious: No
  Sender: FDA-Public Use
  Company Number: US-WYE-H12313309

PATIENT
  Sex: Female
  Weight: 86.26 kg

DRUGS (6)
  1. PRISTIQ [Suspect]
     Indication: DEPRESSION
     Route: 048
     Dates: start: 20091001
  2. PRISTIQ [Suspect]
     Indication: ANXIETY
  3. METOPROLOL [Concomitant]
  4. LASIX [Concomitant]
  5. XANAX [Concomitant]
  6. CALAN [Concomitant]

REACTIONS (4)
  - ASTHENIA [None]
  - DRY MOUTH [None]
  - HEADACHE [None]
  - TREMOR [None]
